FAERS Safety Report 13113487 (Version 1)
Quarter: 2017Q1

REPORT INFORMATION
  Report Type: Spontaneous
  Country: NL (occurrence: NL)
  Receive Date: 20170113
  Receipt Date: 20170113
  Transmission Date: 20170428
  Serious: Yes (Other)
  Sender: FDA-Public Use
  Company Number: NL-PFIZER INC-2017012641

PATIENT
  Age: 62 Year

DRUGS (1)
  1. REVATIO [Suspect]
     Active Substance: SILDENAFIL CITRATE
     Dosage: 20 MG, UNK

REACTIONS (4)
  - Hypotension [Unknown]
  - Heart rate increased [Unknown]
  - Dyspnoea [Unknown]
  - Cardiac discomfort [Unknown]
